FAERS Safety Report 5842184-4 (Version None)
Quarter: 2008Q3

REPORT INFORMATION
  Report Type: 
  Country: None (occurrence: None)
  Receive Date: 20080812
  Receipt Date: 20080729
  Transmission Date: 20090109
  Serious: Yes (Other)
  Sender: FDA-Public Use
  Company Number: US-WYE-H05321808

PATIENT
  Sex: Male

DRUGS (2)
  1. TYGACIL [Suspect]
     Indication: URINARY TRACT INFECTION BACTERIAL
     Dosage: UNKNOWN
     Route: 042
     Dates: start: 20080520, end: 20080501
  2. TYGACIL [Suspect]
     Indication: KLEBSIELLA INFECTION

REACTIONS (2)
  - DRUG INEFFECTIVE FOR UNAPPROVED INDICATION [None]
  - KLEBSIELLA BACTERAEMIA [None]
